FAERS Safety Report 11815425 (Version 1)
Quarter: 2015Q4

REPORT INFORMATION
  Report Type: Spontaneous
  Country: FR (occurrence: FR)
  Receive Date: 20151209
  Receipt Date: 20151209
  Transmission Date: 20160305
  Serious: Yes (Hospitalization)
  Sender: FDA-Public Use
  Company Number: FR-PFIZER INC-2015408381

PATIENT
  Age: 75 Year
  Sex: Male

DRUGS (10)
  1. SODIUM BICARBONATE. [Concomitant]
     Active Substance: SODIUM BICARBONATE
     Dosage: 1.4 %, UNK
  2. LEXOMIL [Concomitant]
     Active Substance: BROMAZEPAM
     Dosage: 1.5 MG, 3X/DAY
  3. HYDROCORTISONE. [Concomitant]
     Active Substance: HYDROCORTISONE
     Dosage: 10 MG, 2 TABLETS THE MORNING AND 1 TABLET ON MIDDAY
  4. XGEVA [Concomitant]
     Active Substance: DENOSUMAB
     Dosage: 120 MG, MONTHLY
     Route: 058
     Dates: start: 20150829
  5. STILNOX [Concomitant]
     Active Substance: ZOLPIDEM TARTRATE
     Dosage: 10 MG, 1X/DAY
  6. EUPRESSYL /00631801/ [Concomitant]
     Active Substance: URAPIDIL
     Dosage: 60 MG, 2X/DAY
  7. INEXIUM /01479302/ [Concomitant]
     Active Substance: ESOMEPRAZOLE MAGNESIUM
     Dosage: 20 MG, 1X/DAY
  8. SUTENT [Suspect]
     Active Substance: SUNITINIB MALATE
     Indication: RENAL CELL CARCINOMA
     Dosage: 50 MG, DAILY 4 WEEKS/6
     Route: 048
     Dates: start: 20150829, end: 20150914
  9. DOLIPRANE [Concomitant]
     Active Substance: ACETAMINOPHEN
     Indication: PAIN
     Dosage: 500 MG, 4X/DAY AS NEEDED
  10. LOXEN /00639802/ [Concomitant]
     Active Substance: NICARDIPINE
     Dosage: 50 MG, 2X/DAY

REACTIONS (2)
  - Mucosal inflammation [Recovering/Resolving]
  - Eyelid oedema [Recovering/Resolving]

NARRATIVE: CASE EVENT DATE: 20150907
